FAERS Safety Report 4442866-5 (Version None)
Quarter: 2004Q3

REPORT INFORMATION
  Report Type: 
  Country: None (occurrence: None)
  Receive Date: 20040903
  Receipt Date: 20040802
  Transmission Date: 20050211
  Serious: Yes (Other)
  Sender: FDA-Public Use
  Company Number: 2004UW11021

PATIENT
  Age: 57 Year
  Sex: Female
  Weight: 68.0396 kg

DRUGS (10)
  1. CRESTOR [Suspect]
     Indication: BLOOD CHOLESTEROL INCREASED
     Dosage: 10 MG DAILY PO
     Route: 048
     Dates: start: 20040507, end: 20040526
  2. CRESTOR [Suspect]
     Indication: BLOOD TRIGLYCERIDES INCREASED
     Dosage: 10 MG DAILY PO
     Route: 048
     Dates: start: 20040507, end: 20040526
  3. CRESTOR [Suspect]
     Indication: BLOOD CHOLESTEROL INCREASED
     Dates: start: 20040601, end: 20040726
  4. CRESTOR [Suspect]
     Indication: BLOOD TRIGLYCERIDES INCREASED
     Dates: start: 20040601, end: 20040726
  5. CRESTOR [Suspect]
     Indication: BLOOD CHOLESTEROL INCREASED
     Dosage: 20 MG PO
     Route: 048
     Dates: start: 20040727
  6. CRESTOR [Suspect]
     Indication: BLOOD TRIGLYCERIDES INCREASED
     Dosage: 20 MG PO
     Route: 048
     Dates: start: 20040727
  7. VIOXX [Concomitant]
  8. SYNTHROID [Concomitant]
  9. ASPIRIN [Concomitant]
  10. WELLBUTRIN [Concomitant]

REACTIONS (4)
  - BURNING SENSATION [None]
  - CONSTIPATION [None]
  - HEADACHE [None]
  - PAIN OF SKIN [None]
